FAERS Safety Report 6151812-8 (Version None)
Quarter: 2009Q2

REPORT INFORMATION
  Report Type: 
  Country: None (occurrence: None)
  Receive Date: 20090410
  Receipt Date: 20090407
  Transmission Date: 20091009
  Serious: No
  Sender: FDA-Public Use
  Company Number: US-B.I. PHARMACEUTICALS,INC./RIDGEFIELD-2008-BP-11316BP

PATIENT
  Sex: Female

DRUGS (5)
  1. SPIRIVA [Suspect]
     Indication: CHRONIC OBSTRUCTIVE PULMONARY DISEASE
     Dosage: 18MCG
     Route: 055
     Dates: start: 20080714
  2. SPIRIVA [Suspect]
     Indication: ASTHMA
  3. ASPIRIN [Concomitant]
     Indication: CORONARY ARTERY DISEASE
     Dosage: 325MG
     Route: 048
     Dates: start: 20080714
  4. LIPITOR [Concomitant]
     Indication: HYPERLIPIDAEMIA
     Dosage: 10MG
     Route: 048
     Dates: start: 20080714
  5. LOVASTATIN [Concomitant]
     Indication: ATRIOVENTRICULAR BLOCK
     Route: 048
     Dates: start: 20030101

REACTIONS (6)
  - CONJUNCTIVITIS [None]
  - DYSPNOEA [None]
  - OCULAR HYPERAEMIA [None]
  - PHOTOPHOBIA [None]
  - UVEITIS [None]
  - VISION BLURRED [None]
